FAERS Safety Report 25401913 (Version 1)
Quarter: 2025Q2

REPORT INFORMATION
  Report Type: Spontaneous
  Country: US (occurrence: US)
  Receive Date: 20250605
  Receipt Date: 20250605
  Transmission Date: 20250716
  Serious: Yes (Other)
  Sender: BAYER HEALTHCARE PHARMACEUTICALS INC.
  Company Number: US-BAYER-2025A073764

PATIENT
  Age: 29 Year
  Sex: Female
  Weight: 64.228 kg

DRUGS (3)
  1. MIRENA [Suspect]
     Active Substance: LEVONORGESTREL
     Indication: Contraception
     Dosage: 20?G/DAY
     Route: 015
     Dates: start: 20241104, end: 20250414
  2. BETADINE [Concomitant]
     Active Substance: POVIDONE-IODINE
     Dates: start: 20250414
  3. MISOPROSTOL [Concomitant]
     Active Substance: MISOPROSTOL
     Dates: start: 20250331

REACTIONS (6)
  - Embedded device [None]
  - Device breakage [None]
  - Papilloma viral infection [None]
  - Cervical dysplasia [None]
  - Genital haemorrhage [None]
  - Complication of device removal [None]

NARRATIVE: CASE EVENT DATE: 20241215
